FAERS Safety Report 6009116-X (Version None)
Quarter: 2008Q4

REPORT INFORMATION
  Report Type: 
  Country: None (occurrence: None)
  Receive Date: 20081216
  Receipt Date: 20081201
  Transmission Date: 20090506
  Serious: Yes (Other)
  Sender: FDA-Public Use
  Company Number: DSA_32753_2008

PATIENT
  Age: 70 Year
  Sex: Male

DRUGS (5)
  1. ENALAPRIL MALEATE [Suspect]
     Indication: CARDIAC FAILURE CHRONIC
     Dosage: 2.5 MG QD ORAL
     Route: 048
     Dates: start: 20080920, end: 20081022
  2. PLAVIX [Suspect]
     Indication: THROMBOSIS
     Dosage: 75 MG QD ORAL
     Route: 048
     Dates: start: 20080920, end: 20081022
  3. ITOROL [Concomitant]
  4. RABEPRAZOLE SODIUM [Concomitant]
  5. SIGMART [Concomitant]

REACTIONS (1)
  - PANCYTOPENIA [None]
